FAERS Safety Report 20577521 (Version 1)
Quarter: 2022Q1

REPORT INFORMATION
  Report Type: Spontaneous
  Country: US (occurrence: US)
  Receive Date: 20220310
  Receipt Date: 20220310
  Transmission Date: 20220423
  Serious: No
  Sender: FDA-Public Use
  Company Number: US-PFIZER INC-202101035975

PATIENT
  Age: 12 Year
  Sex: Male
  Weight: 57.15 kg

DRUGS (6)
  1. GENOTROPIN [Suspect]
     Active Substance: SOMATROPIN
     Indication: Precocious puberty
     Dosage: DAILY, (1.8MG ON ONE DAY +  2.0MG ON THE NEXT DAY, ALTERNATING)
     Dates: start: 202003
  2. GENOTROPIN [Suspect]
     Active Substance: SOMATROPIN
     Indication: Epiphyses premature fusion
  3. LAMOTRIGINE [Concomitant]
     Active Substance: LAMOTRIGINE
     Dosage: 75 MG, 1X/DAY (ONCE A DAY)
  4. ATOMOXETINE [Concomitant]
     Active Substance: ATOMOXETINE
     Dosage: 25 MG, 1X/DAY (ONCE A DAY)
  5. FOCALIN XR [Concomitant]
     Active Substance: DEXMETHYLPHENIDATE HYDROCHLORIDE
     Dosage: 5 MG, 1X/DAY (ONCE A DAY)
  6. LEXAPRO [Concomitant]
     Active Substance: ESCITALOPRAM OXALATE
     Dosage: 5 MG, 1X/DAY (A DAY)

REACTIONS (5)
  - Device chemical property issue [Unknown]
  - Device mechanical issue [Unknown]
  - Device leakage [Unknown]
  - Poor quality device used [Unknown]
  - Underdose [Unknown]
